FAERS Safety Report 20785062 (Version 1)
Quarter: 2022Q2

REPORT INFORMATION
  Report Type: Spontaneous
  Country: US (occurrence: None)
  Receive Date: 20220503
  Receipt Date: 20220503
  Transmission Date: 20220721
  Serious: Yes (Other)
  Sender: FDA-Public Use
  Company Number: None

PATIENT
  Age: 79 Year
  Sex: Male
  Weight: 72 kg

DRUGS (8)
  1. GEMTESA [Suspect]
     Active Substance: VIBEGRON
     Indication: Benign prostatic hyperplasia
     Dosage: OTHER QUANTITY : 1 TABLET(S);?FREQUENCY : DAILY;?
     Route: 048
     Dates: start: 20220421, end: 20220428
  2. HUMIRA [Concomitant]
     Active Substance: ADALIMUMAB
  3. lopermine [Concomitant]
  4. lostatan [Concomitant]
  5. allporine [Concomitant]
  6. TADIFIL [Concomitant]
  7. Vitiamum d [Concomitant]
  8. D -Mannose [Concomitant]

REACTIONS (2)
  - Diarrhoea haemorrhagic [None]
  - Condition aggravated [None]

NARRATIVE: CASE EVENT DATE: 20220428
